FAERS Safety Report 4764321-5 (Version None)
Quarter: 2005Q3

REPORT INFORMATION
  Report Type: 
  Country: None (occurrence: None)
  Receive Date: 20050907
  Receipt Date: 20050426
  Transmission Date: 20060218
  Serious: Yes (Hospitalization, Other)
  Sender: FDA-Public Use
  Company Number: 178296

PATIENT
  Sex: Male

DRUGS (5)
  1. AVONEX [Suspect]
     Indication: RELAPSING-REMITTING MULTIPLE SCLEROSIS
     Dosage: SEE IMAGE
     Route: 030
     Dates: start: 20000707, end: 20021201
  2. AVONEX [Suspect]
     Indication: RELAPSING-REMITTING MULTIPLE SCLEROSIS
     Dosage: SEE IMAGE
     Route: 030
     Dates: start: 20030801
  3. AVONEX [Suspect]
     Indication: RELAPSING-REMITTING MULTIPLE SCLEROSIS
     Dosage: 30 UG;QW;IM
     Route: 030
     Dates: start: 20030101
  4. CLONAZEPAM [Concomitant]
  5. ELISOR [Concomitant]

REACTIONS (7)
  - ASTHENIA [None]
  - ATRIAL FIBRILLATION [None]
  - DILATATION ATRIAL [None]
  - INFLUENZA LIKE ILLNESS [None]
  - INJECTION SITE ERYTHEMA [None]
  - MITRAL VALVE INCOMPETENCE [None]
  - MULTIPLE SCLEROSIS RELAPSE [None]
